FAERS Safety Report 9998065 (Version 2)
Quarter: 2014Q1

REPORT INFORMATION
  Report Type: Spontaneous
  Country: CN (occurrence: CN)
  Receive Date: 20140311
  Receipt Date: 20140311
  Transmission Date: 20141002
  Serious: Yes (Other)
  Sender: FDA-Public Use
  Company Number: CN-ASTRAZENECA-2014SE12293

PATIENT
  Age: 90 Year
  Sex: Male

DRUGS (7)
  1. CASODEX [Suspect]
     Indication: PROSTATE CANCER
     Route: 048
     Dates: start: 201302, end: 201312
  2. CASODEX [Suspect]
     Indication: PROSTATE CANCER
     Route: 048
     Dates: start: 201312
  3. COAPROVEL [Concomitant]
     Indication: HYPERTENSION
     Route: 048
     Dates: start: 2009
  4. NORVASC [Concomitant]
     Indication: HYPERTENSION
     Route: 048
  5. PANCREATIC KININOGENASE [Concomitant]
     Indication: HYPERTENSION
  6. ENANTONE [Concomitant]
     Route: 058
  7. ALPRAZOLAM [Concomitant]
     Indication: ANXIETY
     Route: 048

REACTIONS (2)
  - Malignant neoplasm progression [Unknown]
  - Laboratory test abnormal [Unknown]
